FAERS Safety Report 18619486 (Version 2)
Quarter: 2021Q1

REPORT INFORMATION
  Report Type: Report from Study
  Country: FR (occurrence: FR)
  Receive Date: 20201215
  Receipt Date: 20210226
  Transmission Date: 20210419
  Serious: Yes (Life-Threatening, Other)
  Sender: FDA-Public Use
  Company Number: FR-SA-2020SA140485

PATIENT
  Age: 66 Year
  Sex: Male

DRUGS (26)
  1. EUPRESSYL [URAPIDIL] [Concomitant]
     Active Substance: URAPIDIL
  2. CETIRIZINE [Concomitant]
     Active Substance: CETIRIZINE HYDROCHLORIDE
  3. PHOCYTAN [Concomitant]
     Active Substance: .ALPHA.-GLUCOSE-1-PHOSPHATE
  4. MIDAZOLAM. [Concomitant]
     Active Substance: MIDAZOLAM
  5. NEBIVOLOL. [Concomitant]
     Active Substance: NEBIVOLOL
  6. LOXEN [NICARDIPINE HYDROCHLORIDE] [Concomitant]
     Active Substance: NICARDIPINE HYDROCHLORIDE
  7. ATRACURIUM [Concomitant]
     Active Substance: ATRACURIUM
  8. CEFTRIAXONE. [Concomitant]
     Active Substance: CEFTRIAXONE
  9. PRIMPERAN [Concomitant]
     Active Substance: METOCLOPRAMIDE HYDROCHLORIDE
  10. ACTRAPID [Concomitant]
     Active Substance: INSULIN HUMAN
  11. KARDEGIC [Concomitant]
     Active Substance: ASPIRIN DL-LYSINE
  12. CERNEVIT [Concomitant]
     Active Substance: VITAMINS
  13. MAGNESIUM SULFATE. [Concomitant]
     Active Substance: MAGNESIUM SULFATE
  14. SODIUM CHLORIDE. [Concomitant]
     Active Substance: SODIUM CHLORIDE
  15. LANTUS [Concomitant]
     Active Substance: INSULIN GLARGINE
  16. BASAGLAR [Concomitant]
     Active Substance: INSULIN GLARGINE
  17. AMLODIPINE [Concomitant]
     Active Substance: AMLODIPINE BESYLATE
  18. PLAQUENIL [Concomitant]
     Active Substance: HYDROXYCHLOROQUINE SULFATE
  19. SARILUMAB [Suspect]
     Active Substance: SARILUMAB
     Indication: COVID-19
     Dosage: 400 MG, 1X
     Route: 042
     Dates: start: 20200405, end: 20200405
  20. SUFENTANIL [Concomitant]
     Active Substance: SUFENTANIL
  21. HEPARIN [Concomitant]
     Active Substance: HEPARIN SODIUM
  22. POTASSIUM [Concomitant]
     Active Substance: POTASSIUM
  23. NOVORAPID [Concomitant]
     Active Substance: INSULIN ASPART
  24. CALCIPARINE [Suspect]
     Active Substance: HEPARIN CALCIUM
     Indication: PRODUCT USED FOR UNKNOWN INDICATION
     Dosage: UNK
     Dates: start: 20200405
  25. SIMVASTATINE [Concomitant]
     Active Substance: SIMVASTATIN
  26. DOLIPRANE [Concomitant]
     Active Substance: ACETAMINOPHEN

REACTIONS (7)
  - Catheter site haemorrhage [Recovered/Resolved]
  - Pneumonia bacterial [Recovered/Resolved]
  - Compartment syndrome [Recovered/Resolved]
  - Fungaemia [Recovered/Resolved]
  - Septic shock [Recovered/Resolved]
  - Neutropenia [Recovered/Resolved]
  - Acute kidney injury [Recovered/Resolved]

NARRATIVE: CASE EVENT DATE: 20200406
